FAERS Safety Report 19349445 (Version 1)
Quarter: 2021Q2

REPORT INFORMATION
  Report Type: Spontaneous
  Country: US (occurrence: US)
  Receive Date: 20210530
  Receipt Date: 20210530
  Transmission Date: 20210717
  Serious: No
  Sender: FDA-Public Use
  Company Number: None

PATIENT
  Age: 37 Year
  Sex: Female
  Weight: 99.9 kg

DRUGS (3)
  1. TREMFYA [Suspect]
     Active Substance: GUSELKUMAB
     Indication: PSORIATIC ARTHROPATHY
     Dates: start: 20210529
  2. CITALOPRAM [Concomitant]
     Active Substance: CITALOPRAM HYDROBROMIDE
  3. MOMETASONE [Concomitant]
     Active Substance: MOMETASONE

REACTIONS (3)
  - Injection site erythema [None]
  - Injection site mass [None]
  - Injection site pruritus [None]

NARRATIVE: CASE EVENT DATE: 20210529
